FAERS Safety Report 8582395-0 (Version None)
Quarter: 2012Q3

REPORT INFORMATION
  Report Type: 
  Country: None (occurrence: None)
  Receive Date: 20120809
  Receipt Date: 20120802
  Transmission Date: 20120928
  Serious: Yes (Death, Hospitalization)
  Sender: FDA-Public Use
  Company Number: US-GLAXOSMITHKLINE-A0988376A

PATIENT
  Age: 67 Year
  Sex: Male
  Weight: 89.1 kg

DRUGS (10)
  1. COREG [Suspect]
     Indication: HYPERLIPIDAEMIA
     Dates: end: 20111010
  2. POTASSIUM CHLORIDE [Suspect]
     Dosage: 20MEQ PER DAY
     Route: 048
     Dates: end: 20111105
  3. ZOCOR [Suspect]
     Indication: HYPERLIPIDAEMIA
     Dosage: 40MG PER DAY
     Dates: end: 20111105
  4. ASPIRIN [Suspect]
     Indication: PROPHYLAXIS
     Dates: end: 20111105
  5. FLUZONE [Suspect]
     Indication: INFLUENZA IMMUNISATION
     Route: 058
     Dates: start: 20111005, end: 20111005
  6. LASIX [Suspect]
     Indication: HYPERTENSION
  7. LEVOTHYROXINE SODIUM [Suspect]
     Indication: HYPOTHYROIDISM
     Dosage: 50MCG PER DAY
     Dates: end: 20111105
  8. BENZONATATE [Suspect]
     Indication: COUGH
     Dates: end: 20111105
  9. CRIZOTINIB [Suspect]
     Indication: NON-SMALL CELL LUNG CANCER
     Dosage: 250MG TWICE PER DAY
     Route: 048
     Dates: start: 20110603, end: 20111024
  10. ZETIA [Suspect]
     Indication: HYPERLIPIDAEMIA
     Dosage: 10MEQ PER DAY
     Dates: start: 20111105

REACTIONS (4)
  - DEATH [None]
  - CONSTIPATION [None]
  - ILEUS [None]
  - ORTHOSTATIC HYPOTENSION [None]
